FAERS Safety Report 16936769 (Version 1)
Quarter: 2019Q4

REPORT INFORMATION
  Report Type: Spontaneous
  Country: BR (occurrence: BR)
  Receive Date: 20191018
  Receipt Date: 20191018
  Transmission Date: 20200122
  Serious: Yes (Hospitalization, Other)
  Sender: FDA-Public Use
  Company Number: BR-SA-2019SA252784

PATIENT
  Age: 84 Year
  Sex: Female

DRUGS (2)
  1. APROVEL [Suspect]
     Active Substance: IRBESARTAN
     Dosage: 1 TABLET AT MORNING AND 1 TABLET AT NIGHT
     Route: 065
  2. APROVEL [Suspect]
     Active Substance: IRBESARTAN
     Indication: BLOOD PRESSURE MEASUREMENT
     Dosage: 1 TABLET AT MORNING
     Route: 065

REACTIONS (9)
  - Gastrointestinal carcinoma [Unknown]
  - Abdominal pain upper [Unknown]
  - Inappropriate schedule of product administration [Unknown]
  - Vomiting [Unknown]
  - Blood pressure decreased [Unknown]
  - Malaise [Unknown]
  - Weight decreased [Unknown]
  - Hypertension [Unknown]
  - Blood pressure fluctuation [Unknown]
